FAERS Safety Report 12597610 (Version 1)
Quarter: 2016Q3

REPORT INFORMATION
  Report Type: Spontaneous
  Country: US (occurrence: None)
  Receive Date: 20160726
  Receipt Date: 20160726
  Transmission Date: 20161109
  Serious: Yes (Disabling)
  Sender: FDA-Public Use
  Company Number: None

PATIENT
  Age: 40 Year
  Sex: Female
  Weight: 77.11 kg

DRUGS (7)
  1. DANAZOL 200 MG CAPSULE LANNETT CO. INC. [Suspect]
     Active Substance: DANAZOL
     Indication: UTERINE LEIOMYOMA
     Route: 048
     Dates: start: 20150921, end: 20151116
  2. WOMEN^S ONE A DAY-VITAFUSION [Concomitant]
  3. LOW DOSE ASPIRIN [Concomitant]
     Active Substance: ASPIRIN
  4. TRANEXAMIC ACID. [Concomitant]
     Active Substance: TRANEXAMIC ACID
  5. DANAZOL 200 MG CAPSULE LANNETT CO. INC. [Suspect]
     Active Substance: DANAZOL
     Indication: INFERTILITY
     Route: 048
     Dates: start: 20150921, end: 20151116
  6. LETROZOLE. [Suspect]
     Active Substance: LETROZOLE
     Route: 048
  7. SE-TAN [Concomitant]

REACTIONS (3)
  - Eye disorder [None]
  - Thrombosis [None]
  - Blindness [None]

NARRATIVE: CASE EVENT DATE: 20151116
